FAERS Safety Report 12056987 (Version 1)
Quarter: 2016Q1

REPORT INFORMATION
  Report Type: Spontaneous
  Country: US (occurrence: US)
  Receive Date: 20160210
  Receipt Date: 20160210
  Transmission Date: 20160526
  Serious: No
  Sender: FDA-Public Use
  Company Number: US-TEVA-576527USA

PATIENT

DRUGS (1)
  1. NADOLOL. [Suspect]
     Active Substance: NADOLOL
     Route: 065

REACTIONS (5)
  - Hyperhidrosis [Unknown]
  - Weight increased [Unknown]
  - Depression [Unknown]
  - Dizziness [Unknown]
  - Product substitution issue [Unknown]
